FAERS Safety Report 12406770 (Version 2)
Quarter: 2016Q3

REPORT INFORMATION
  Report Type: Spontaneous
  Country: US (occurrence: US)
  Receive Date: 20160526
  Receipt Date: 20160706
  Transmission Date: 20161109
  Serious: Yes (Other)
  Sender: FDA-Public Use
  Company Number: US-JNJFOC-20160519938

PATIENT
  Sex: Female
  Weight: 81.65 kg

DRUGS (4)
  1. ELMIRON [Suspect]
     Active Substance: PENTOSAN POLYSULFATE SODIUM
     Indication: CYSTITIS INTERSTITIAL
     Route: 048
     Dates: start: 2012
  2. LABETALOL [Concomitant]
     Active Substance: LABETALOL\LABETALOL HYDROCHLORIDE
     Route: 065
     Dates: start: 2013
  3. ELMIRON [Suspect]
     Active Substance: PENTOSAN POLYSULFATE SODIUM
     Indication: ADNEXA UTERI PAIN
     Route: 048
     Dates: start: 2012
  4. MYRBETRIQ [Concomitant]
     Active Substance: MIRABEGRON
     Route: 065
     Dates: start: 2014

REACTIONS (3)
  - Loss of consciousness [Unknown]
  - Therapeutic response decreased [Unknown]
  - Aortic aneurysm [Unknown]

NARRATIVE: CASE EVENT DATE: 2012
